FAERS Safety Report 12289560 (Version 1)
Quarter: 2016Q2

REPORT INFORMATION
  Report Type: Spontaneous
  Country: US (occurrence: None)
  Receive Date: 20160420
  Receipt Date: 20160420
  Transmission Date: 20160815
  Serious: Yes (Other)
  Sender: FDA-Public Use
  Company Number: None

PATIENT
  Age: 51 Year
  Sex: Female
  Weight: 57.61 kg

DRUGS (6)
  1. FISH OIL [Concomitant]
     Active Substance: FISH OIL
  2. VITAMIN D [Concomitant]
     Active Substance: CHOLECALCIFEROL
  3. ATORVASTATIN [Concomitant]
     Active Substance: ATORVASTATIN
  4. CALCIUM [Concomitant]
     Active Substance: CALCIUM
  5. VITAMIN B12 [Concomitant]
     Active Substance: CYANOCOBALAMIN
  6. METRONIDAZOLE. [Suspect]
     Active Substance: METRONIDAZOLE
     Indication: BACTERIAL INFECTION
     Dosage: 1 PILL
     Route: 048
     Dates: start: 20160219, end: 20160225

REACTIONS (15)
  - Diarrhoea [None]
  - Sudden onset of sleep [None]
  - Nausea [None]
  - Dysgeusia [None]
  - Vomiting [None]
  - Abdominal discomfort [None]
  - Fatigue [None]
  - Thinking abnormal [None]
  - Photophobia [None]
  - Headache [None]
  - Oral disorder [None]
  - Muscle spasms [None]
  - Oral mucosal blistering [None]
  - Balance disorder [None]
  - Illogical thinking [None]

NARRATIVE: CASE EVENT DATE: 20160220
